FAERS Safety Report 10070005 (Version 1)
Quarter: 2014Q2

REPORT INFORMATION
  Report Type: Spontaneous
  Country: US (occurrence: None)
  Receive Date: 20140409
  Receipt Date: 20140409
  Transmission Date: 20141212
  Serious: Yes (Death, Life-Threatening)
  Sender: FDA-Public Use
  Company Number: None

PATIENT
  Age: 60 Year
  Sex: Male
  Weight: 100.7 kg

DRUGS (1)
  1. PANITUMUMAB [Suspect]
     Indication: COLORECTAL CANCER METASTATIC
     Dosage: 6MG/KG EVERY 14 DAYS INTRAVENOUS
     Route: 042
     Dates: start: 20130201, end: 20131120

REACTIONS (5)
  - Dyspnoea [None]
  - Mental status changes [None]
  - Aspiration [None]
  - Infection [None]
  - Pulmonary embolism [None]
